FAERS Safety Report 11939252 (Version 1)
Quarter: 2016Q1

REPORT INFORMATION
  Report Type: Spontaneous
  Country: CA (occurrence: CA)
  Receive Date: 20160122
  Receipt Date: 20160122
  Transmission Date: 20160526
  Serious: Yes (Hospitalization, Other)
  Sender: FDA-Public Use
  Company Number: CA-TEVA-627500ACC

PATIENT
  Age: 81 Year
  Sex: Male

DRUGS (7)
  1. TEVA-CEFALEXIN [Suspect]
     Active Substance: CEPHALEXIN
     Indication: SKIN INFECTION
     Dosage: 2000 MILLIGRAM DAILY;
     Route: 048
  2. AMLODIPINE [Concomitant]
     Active Substance: AMLODIPINE BESYLATE
  3. RABEPRAZOLE [Concomitant]
     Active Substance: RABEPRAZOLE
  4. HYDROXYCHLOROQUINE [Concomitant]
     Active Substance: HYDROXYCHLOROQUINE
  5. CETIRIZINE [Concomitant]
     Active Substance: CETIRIZINE HYDROCHLORIDE
  6. PREDNISONE. [Concomitant]
     Active Substance: PREDNISONE
  7. ATORVASTATIN CALCIUM. [Concomitant]
     Active Substance: ATORVASTATIN CALCIUM

REACTIONS (3)
  - Acute myocardial infarction [Not Recovered/Not Resolved]
  - Renal failure [Not Recovered/Not Resolved]
  - Toxic epidermal necrolysis [Not Recovered/Not Resolved]
